FAERS Safety Report 8002567-3 (Version None)
Quarter: 2011Q4

REPORT INFORMATION
  Report Type: 
  Country: None (occurrence: None)
  Receive Date: 20111222
  Receipt Date: 20111219
  Transmission Date: 20120403
  Serious: Yes (Hospitalization)
  Sender: FDA-Public Use
  Company Number: CA-ABBOTT-11P-028-0871819-00

PATIENT
  Sex: Female
  Weight: 54.48 kg

DRUGS (17)
  1. SUPERDROL [Concomitant]
     Indication: PAIN
     Route: 048
     Dates: start: 20010101
  2. PREDNISONE TAB [Concomitant]
     Indication: PRODUCT USED FOR UNKNOWN INDICATION
  3. PROVERA [Concomitant]
     Indication: MENOPAUSE
  4. ALENDRONATE SODIUM [Concomitant]
     Indication: BONE DISORDER
     Route: 048
     Dates: start: 20110801
  5. BIOCAL-D [Concomitant]
     Indication: BONE DISORDER
     Route: 048
     Dates: start: 20110801
  6. ELAVIL [Concomitant]
     Indication: PAIN
  7. HUMIRA [Suspect]
     Indication: CROHN'S DISEASE
     Route: 058
     Dates: start: 20071123
  8. PROVERA [Concomitant]
     Indication: HORMONE REPLACEMENT THERAPY
     Route: 048
     Dates: start: 19990101
  9. PANTOPRAZOLE SODIUM [Concomitant]
     Indication: PROPHYLAXIS
  10. QUESTRAN [Concomitant]
     Indication: LIVER DISORDER
     Route: 048
     Dates: start: 19860101
  11. ELAVIL [Concomitant]
     Indication: DEPRESSION
     Route: 048
     Dates: start: 19950101
  12. ATIVAN [Concomitant]
     Indication: SLEEP DISORDER
     Route: 048
     Dates: start: 19960101
  13. ZYPREXA [Concomitant]
     Indication: PSYCHOTIC DISORDER
     Route: 048
     Dates: start: 20080101
  14. PANTOPRAZOLE SODIUM [Concomitant]
     Indication: GASTRIC DISORDER
     Route: 048
     Dates: start: 20000101
  15. WELLBUTRIN [Concomitant]
     Indication: DEPRESSION
     Route: 048
     Dates: start: 19950101
  16. ESTROGEL [Concomitant]
     Indication: HORMONE REPLACEMENT THERAPY
     Route: 061
     Dates: start: 19990101
  17. VITAMIN B-12 [Concomitant]
     Indication: VITAMIN SUPPLEMENTATION
     Route: 058
     Dates: start: 19860101

REACTIONS (5)
  - MALABSORPTION [None]
  - BLOOD POTASSIUM DECREASED [None]
  - CROHN'S DISEASE [None]
  - ASTHENIA [None]
  - MOVEMENT DISORDER [None]
